FAERS Safety Report 6390485-6 (Version None)
Quarter: 2009Q4

REPORT INFORMATION
  Report Type: 
  Country: None (occurrence: None)
  Receive Date: 20091006
  Receipt Date: 20090902
  Transmission Date: 20100525
  Serious: No
  Sender: FDA-Public Use
  Company Number: US-BAYER-200914171BCC

PATIENT
  Age: 86 Year
  Sex: Female
  Weight: 51 kg

DRUGS (11)
  1. ALEVE (CAPLET) [Suspect]
     Indication: ANALGESIC THERAPY
     Dosage: TOTAL DAILY DOSE: 440 MG  UNIT DOSE: 220 MG
     Route: 048
     Dates: start: 20090301
  2. LISINOPRIL AND HYDROCHLOROTHIAZIDE [Concomitant]
     Route: 065
  3. AXID [Concomitant]
     Route: 065
  4. ULTRAM [Concomitant]
     Route: 065
  5. TIMOLOL [Concomitant]
     Route: 065
  6. ASPIRIN [Concomitant]
     Route: 065
  7. RITE AID CALCIUM CITRATE PLUS D [Concomitant]
     Route: 065
  8. GLUCOSAMINE CHONDROITIN [Concomitant]
     Route: 065
  9. CLIMARA [Concomitant]
     Route: 065
  10. THERA-TEARS [Concomitant]
     Route: 065
  11. XALATAN [Concomitant]
     Route: 065

REACTIONS (1)
  - HYPERTENSION [None]
